FAERS Safety Report 18213890 (Version 1)
Quarter: 2020Q3

REPORT INFORMATION
  Report Type: Report from Study
  Country: IT (occurrence: IT)
  Receive Date: 20200831
  Receipt Date: 20200831
  Transmission Date: 20201103
  Serious: Yes (Other)
  Sender: FDA-Public Use
  Company Number: IT-MYLANLABS-2020M1074894

PATIENT
  Age: 46 Year
  Sex: Male

DRUGS (3)
  1. SIROLIMUS. [Suspect]
     Active Substance: SIROLIMUS
     Dosage: SUBSEQUENTLY TITRATED TO REACH BLOOD LEVELS OF 8 TO 12 NG/ML
     Route: 048
  2. PREDNISONE. [Suspect]
     Active Substance: PREDNISONE
     Indication: ERDHEIM-CHESTER DISEASE
     Dosage: UNK
     Route: 065
  3. SIROLIMUS. [Suspect]
     Active Substance: SIROLIMUS
     Indication: ERDHEIM-CHESTER DISEASE
     Dosage: SINGLE ORAL DOSE OF 2 MG/DAY
     Route: 048

REACTIONS (2)
  - Skin infection [Unknown]
  - Panniculitis [Unknown]
